FAERS Safety Report 4853084-0 (Version None)
Quarter: 2005Q4

REPORT INFORMATION
  Report Type: 
  Country: None (occurrence: None)
  Receive Date: 20051214
  Receipt Date: 20051206
  Transmission Date: 20060501
  Serious: Yes (Death, Hospitalization)
  Sender: FDA-Public Use
  Company Number: FR-BRISTOL-MYERS SQUIBB COMPANY-13205497

PATIENT
  Age: 70 Year
  Sex: Female

DRUGS (1)
  1. TAXOL [Suspect]
     Indication: BREAST CANCER
     Route: 042
     Dates: start: 20050415, end: 20050829

REACTIONS (3)
  - LICHENOID KERATOSIS [None]
  - MALIGNANT NEOPLASM PROGRESSION [None]
  - TOXIC SKIN ERUPTION [None]
